FAERS Safety Report 16382248 (Version 3)
Quarter: 2019Q2

REPORT INFORMATION
  Report Type: Spontaneous
  Country: US (occurrence: US)
  Receive Date: 20190603
  Receipt Date: 20190620
  Transmission Date: 20190711
  Serious: Yes (Death, Other)
  Sender: FDA-Public Use
  Company Number: US-SHIRE-US201917782

PATIENT
  Age: 18 Year
  Sex: Male

DRUGS (1)
  1. ELAPRASE [Suspect]
     Active Substance: IDURSULFASE
     Indication: MUCOPOLYSACCHARIDOSIS II
     Dosage: UNK, 1X/WEEK
     Route: 042
     Dates: start: 20060918

REACTIONS (3)
  - Cough [Unknown]
  - Death [Fatal]
  - Tremor [Unknown]

NARRATIVE: CASE EVENT DATE: 20190610
